FAERS Safety Report 17634070 (Version 1)
Quarter: 2020Q2

REPORT INFORMATION
  Report Type: Report from Study
  Country: US (occurrence: US)
  Receive Date: 20200406
  Receipt Date: 20200406
  Transmission Date: 20200713
  Serious: Yes (Hospitalization)
  Sender: FDA-Public Use
  Company Number: NVSC2020US092889

PATIENT
  Age: 4 Month
  Sex: Male
  Weight: 10.8 kg

DRUGS (3)
  1. LEVOCARNITINE. [Concomitant]
     Active Substance: LEVOCARNITINE
     Indication: SPINAL MUSCULAR ATROPHY
     Dosage: 100 MG/ML
     Route: 065
     Dates: start: 20200227
  2. ZOLGENSMA [Suspect]
     Active Substance: ONASEMNOGENE ABEPARVOVEC-XIOI
     Indication: SPINAL MUSCULAR ATROPHY
     Dosage: UNK
     Route: 042
     Dates: start: 20190122
  3. ZOLGENSMA [Suspect]
     Active Substance: ONASEMNOGENE ABEPARVOVEC-XIOI
     Dosage: UNK
     Route: 042
     Dates: start: 20190122

REACTIONS (8)
  - Chronic respiratory failure [Unknown]
  - Lung opacity [Recovering/Resolving]
  - Atelectasis [Unknown]
  - Tracheitis [Unknown]
  - Respiratory syncytial virus bronchiolitis [Unknown]
  - Leukocytosis [Recovering/Resolving]
  - Pneumonia [Unknown]
  - Dependence on respirator [Unknown]

NARRATIVE: CASE EVENT DATE: 20190215
